FAERS Safety Report 8448875-3 (Version None)
Quarter: 2012Q2

REPORT INFORMATION
  Report Type: 
  Country: None (occurrence: None)
  Receive Date: 20120619
  Receipt Date: 20120614
  Transmission Date: 20120825
  Serious: Yes (Hospitalization)
  Sender: FDA-Public Use
  Company Number: US-GLAXOSMITHKLINE-A0853994A

PATIENT
  Age: 83 Year
  Sex: Female
  Weight: 84.1 kg

DRUGS (7)
  1. GLYBURIDE [Concomitant]
  2. THEOPHYLLINE [Concomitant]
  3. AMLODIPINE [Concomitant]
  4. AVANDIA [Suspect]
     Indication: TYPE 2 DIABETES MELLITUS
     Dosage: 4MG PER DAY
     Route: 048
     Dates: start: 20051217, end: 20090505
  5. MELOXICAM [Concomitant]
  6. LIPITOR [Concomitant]
  7. BENAZEPRIL HYDROCHLORIDE [Concomitant]

REACTIONS (4)
  - OXYGEN SUPPLEMENTATION [None]
  - ATRIAL FIBRILLATION [None]
  - CARDIAC FAILURE CONGESTIVE [None]
  - BLOOD GLUCOSE FLUCTUATION [None]
